FAERS Safety Report 4777973-0 (Version None)
Quarter: 2005Q3

REPORT INFORMATION
  Report Type: 
  Country: None (occurrence: None)
  Receive Date: 20050921
  Receipt Date: 20050909
  Transmission Date: 20060218
  Serious: Yes (Other)
  Sender: FDA-Public Use
  Company Number: 216061

PATIENT
  Age: 56 Year
  Sex: Female

DRUGS (1)
  1. AVASTIN [Suspect]
     Indication: BREAST CANCER
     Dosage: 300 MG,INTRAVENOUS
     Route: 042

REACTIONS (3)
  - CHEST PAIN [None]
  - HEADACHE [None]
  - NECK PAIN [None]
